FAERS Safety Report 11253883 (Version 2)
Quarter: 2015Q3

REPORT INFORMATION
  Report Type: Spontaneous
  Country: JP (occurrence: JP)
  Receive Date: 20150709
  Receipt Date: 20150717
  Transmission Date: 20151125
  Serious: Yes (Other)
  Sender: FDA-Public Use
  Company Number: PHJP2015JP010944

PATIENT
  Sex: Female

DRUGS (2)
  1. TASIGNA [Suspect]
     Active Substance: NILOTINIB
     Indication: CHRONIC MYELOID LEUKAEMIA
     Dosage: 600 MG, QD
     Route: 048
     Dates: start: 201209, end: 201210
  2. TASIGNA [Suspect]
     Active Substance: NILOTINIB
     Dosage: 600 MG, UNK
     Route: 048
     Dates: start: 201502

REACTIONS (1)
  - Coronary artery disease [Not Recovered/Not Resolved]
